FAERS Safety Report 9870753 (Version 1)
Quarter: 2014Q1

REPORT INFORMATION
  Report Type: Spontaneous
  Country: US (occurrence: US)
  Receive Date: 20140205
  Receipt Date: 20140205
  Transmission Date: 20141002
  Serious: No
  Sender: FDA-Public Use
  Company Number: US-PFIZER INC-2014031119

PATIENT
  Age: 78 Year
  Sex: Female
  Weight: 77.1 kg

DRUGS (1)
  1. ADVIL GELCAPS [Suspect]
     Indication: PAIN
     Dosage: 400 MG, UNK
     Route: 048
     Dates: start: 20140130

REACTIONS (1)
  - Abdominal pain upper [Recovering/Resolving]
